FAERS Safety Report 9478059 (Version 2)
Quarter: 2013Q3

REPORT INFORMATION
  Report Type: Report from Study
  Country: IT (occurrence: IT)
  Receive Date: 20130827
  Receipt Date: 20130827
  Transmission Date: 20140515
  Serious: Yes (Hospitalization, Other)
  Sender: FDA-Public Use
  Company Number: PHHO2011IT08156

PATIENT
  Age: 69 Year
  Sex: Male
  Weight: 110 kg

DRUGS (6)
  1. PLACEBO [Suspect]
     Indication: CORONARY ARTERY DISEASE
     Dosage: UNK
     Route: 048
     Dates: start: 20100823
  2. ALISKIREN [Suspect]
     Indication: CORONARY ARTERY DISEASE
     Dosage: 150 MG, UNK
  3. SINTROM [Concomitant]
     Indication: ATRIAL FIBRILLATION
     Dosage: 4 MG, UNK
     Dates: start: 20070601, end: 20110508
  4. CARDIOASPIRIN [Concomitant]
     Indication: CORONARY ANGIOPLASTY
     Dosage: 100 MG, QD
     Dates: start: 20100718
  5. PEPTAZOL [Concomitant]
     Indication: PROPHYLAXIS
     Dosage: 20 MG, QD
     Dates: start: 20100718
  6. LASIX [Concomitant]
     Indication: HYPERTENSION
     Dosage: 25 MG, QD
     Dates: start: 20100823

REACTIONS (2)
  - Urinary tract infection [Recovering/Resolving]
  - Concomitant disease progression [Recovering/Resolving]
